FAERS Safety Report 10236151 (Version 1)
Quarter: 2014Q2

REPORT INFORMATION
  Report Type: Spontaneous
  Country: GB (occurrence: GB)
  Receive Date: 20140613
  Receipt Date: 20140613
  Transmission Date: 20141212
  Serious: Yes (Other)
  Sender: FDA-Public Use
  Company Number: GB-JNJFOC-20140602923

PATIENT
  Age: 8 Decade
  Sex: Male

DRUGS (1)
  1. XEPLION [Suspect]
     Indication: DEMENTIA
     Route: 030

REACTIONS (3)
  - Aggression [Unknown]
  - Agitation [Unknown]
  - Off label use [Unknown]
